FAERS Safety Report 6310092-0 (Version None)
Quarter: 2009Q3

REPORT INFORMATION
  Report Type: 
  Country: None (occurrence: None)
  Receive Date: 20090811
  Receipt Date: 20090728
  Transmission Date: 20100115
  Serious: Yes (Hospitalization)
  Sender: FDA-Public Use
  Company Number: KV200801643

PATIENT
  Age: 73 Year
  Sex: Female
  Weight: 58.5 kg

DRUGS (13)
  1. MORPHINE SULFATE [Suspect]
     Indication: BACK PAIN
     Dosage: 60 MG, QD, ORAL
     Route: 048
     Dates: start: 20080619, end: 20080620
  2. ZOLOFT [Concomitant]
  3. DIAZEPAM [Concomitant]
  4. LORTAB [Concomitant]
  5. PROZAC [Concomitant]
  6. PREDNISONE TAB [Concomitant]
  7. COMBIVENT /01033501/ (IPRATROPIUM BROMIDE, SALBUTAMOL) [Concomitant]
  8. SPIRIVA [Concomitant]
  9. COUMADIN [Concomitant]
  10. AVAPRO (IBERSARTAN) [Concomitant]
  11. VYTORIN [Concomitant]
  12. PRILOSEC /00661201/ (OMEPRAZOLE) [Concomitant]
  13. TYLENOL ARTHRITIS (PARACETAMOL) [Concomitant]

REACTIONS (4)
  - DIZZINESS [None]
  - FALL [None]
  - HIP FRACTURE [None]
  - PRODUCT QUALITY ISSUE [None]
